FAERS Safety Report 13236822 (Version 1)
Quarter: 2017Q1

REPORT INFORMATION
  Report Type: Spontaneous
  Country: CN (occurrence: CN)
  Receive Date: 20170215
  Receipt Date: 20170215
  Transmission Date: 20170428
  Serious: Yes (Death)
  Sender: FDA-Public Use
  Company Number: CN-BAYER-2017-023720

PATIENT
  Age: 73 Year
  Sex: Female

DRUGS (11)
  1. POTASSIUM CHLORIDE. [Concomitant]
     Active Substance: POTASSIUM CHLORIDE
     Dosage: 0.7 G, UNK
     Route: 042
     Dates: start: 20161117
  2. HEPARIN SODIUM. [Suspect]
     Active Substance: HEPARIN SODIUM
     Indication: ACUTE MYOCARDIAL INFARCTION
     Dosage: 1 DF, QD
     Route: 058
     Dates: start: 20161117, end: 20161117
  3. CLOPIDOGREL SULFATE [Concomitant]
     Active Substance: CLOPIDOGREL BISULFATE
     Dosage: 300 MG, UNK
  4. SODIUM CHLORIDE INJECTION [Concomitant]
     Active Substance: SODIUM CHLORIDE
     Dosage: 0.75 MG, UNK
     Route: 042
  5. MAGNESIUM SULPHATE [MAGNESIUM SULFATE] [Concomitant]
     Dosage: 2.5 MG, UNK
  6. RECOMBINATE [FACTOR VIII, RECOMBINANT] [Concomitant]
     Dosage: 18 MG, UNK
     Route: 040
     Dates: start: 20161117
  7. MAGNESIUM SULFATE. [Concomitant]
     Active Substance: MAGNESIUM SULFATE
     Dosage: 2.5 G, UNK
     Route: 042
     Dates: start: 20161117
  8. BAYASPIRIN 100 MG [Suspect]
     Active Substance: ASPIRIN
     Indication: ACUTE MYOCARDIAL INFARCTION
     Dosage: 300 MG, QD
     Route: 048
     Dates: start: 20161117, end: 20161117
  9. RETEPLASE [Suspect]
     Active Substance: RETEPLASE
     Indication: ACUTE MYOCARDIAL INFARCTION
     Dosage: 18 MG, BID
     Route: 042
     Dates: start: 20161117, end: 20161117
  10. PLAVIX [Suspect]
     Active Substance: CLOPIDOGREL BISULFATE
     Indication: ACUTE MYOCARDIAL INFARCTION
     Dosage: 300 MG, QD
     Route: 048
     Dates: start: 20161117, end: 20161117
  11. CITICOLINE SODIUM [Concomitant]
     Active Substance: CITICOLINE SODIUM
     Dosage: 0.75 G, UNK
     Route: 041
     Dates: start: 20161117

REACTIONS (4)
  - Brain stem haemorrhage [Fatal]
  - Cardiac arrest [Fatal]
  - Brain herniation [Fatal]
  - Respiratory arrest [Fatal]

NARRATIVE: CASE EVENT DATE: 20161117
